FAERS Safety Report 9045205 (Version 1)
Quarter: 2013Q1

REPORT INFORMATION
  Report Type: Report from Study
  Country: US (occurrence: US)
  Receive Date: 20130130
  Receipt Date: 20130130
  Transmission Date: 20140127
  Serious: No
  Sender: FDA-Public Use
  Company Number: US-ABBOTT-12P-163-0917719-00

PATIENT
  Age: 50 Year
  Sex: Female

DRUGS (10)
  1. HUMIRA 40 MG/0.8 ML PEN [Suspect]
     Indication: PSORIASIS
     Dates: start: 20120220
  2. METFORMIN [Suspect]
  3. NOVOLOG [Concomitant]
     Indication: DIABETES MELLITUS
     Dosage: 10 UNITS WITH EACH MEAL
  4. LEVEMIR [Concomitant]
     Indication: DIABETES MELLITUS
     Dosage: 90 UNITS AFTER DINNER
  5. LOSARTAN [Concomitant]
     Indication: PRODUCT USED FOR UNKNOWN INDICATION
  6. ATORVASTATIN [Concomitant]
     Indication: PRODUCT USED FOR UNKNOWN INDICATION
  7. POTASSIUM [Concomitant]
     Indication: PRODUCT USED FOR UNKNOWN INDICATION
     Dosage: 2 DAILY
  8. AMLODIPINE [Concomitant]
     Indication: PRODUCT USED FOR UNKNOWN INDICATION
  9. ALLOPURINOL [Concomitant]
     Indication: GOUT
  10. UNKNOWN DIURETIC [Concomitant]
     Indication: OEDEMA PERIPHERAL

REACTIONS (10)
  - Skin atrophy [Unknown]
  - Bone disorder [Not Recovered/Not Resolved]
  - Joint dislocation [Not Recovered/Not Resolved]
  - Condition aggravated [Not Recovered/Not Resolved]
  - Tearfulness [Not Recovered/Not Resolved]
  - Stress [Not Recovered/Not Resolved]
  - Memory impairment [Not Recovered/Not Resolved]
  - Drug ineffective [Recovering/Resolving]
  - Psoriasis [Recovering/Resolving]
  - Pain in extremity [Not Recovered/Not Resolved]
